FAERS Safety Report 24440695 (Version 2)
Quarter: 2024Q4

REPORT INFORMATION
  Report Type: Spontaneous
  Country: IT (occurrence: IT)
  Receive Date: 20241016
  Receipt Date: 20241017
  Transmission Date: 20250114
  Serious: No
  Sender: ROCHE
  Company Number: IT-ROCHE-2960423

PATIENT
  Age: 33 Year
  Sex: Male

DRUGS (2)
  1. EMICIZUMAB [Suspect]
     Active Substance: EMICIZUMAB
     Indication: Factor VIII deficiency
     Dosage: LOADING DOSE
     Route: 065
  2. EMICIZUMAB [Suspect]
     Active Substance: EMICIZUMAB
     Route: 065

REACTIONS (2)
  - Haemorrhage [Unknown]
  - Drug specific antibody present [Recovered/Resolved]
